FAERS Safety Report 8845839 (Version 2)
Quarter: 2012Q4

REPORT INFORMATION
  Report Type: 
  Country: US (occurrence: US)
  Receive Date: 20121017
  Receipt Date: 20121107
  Transmission Date: 20130627
  Serious: No
  Sender: FDA-Public Use
  Company Number: US-ASTRAZENECA-2012SE75692

PATIENT
  Age: 69 Year
  Sex: Male

DRUGS (2)
  1. SYMBICORT PMDI [Suspect]
     Indication: ASTHMA
     Dosage: 160/4.5 MCG BID
     Route: 055
  2. SINGULAIR [Concomitant]

REACTIONS (2)
  - Asthma [Unknown]
  - Sleep disorder due to general medical condition, insomnia type [Unknown]
